FAERS Safety Report 11652254 (Version 1)
Quarter: 2015Q4

REPORT INFORMATION
  Report Type: Report from Study
  Country: US (occurrence: US)
  Receive Date: 20151022
  Receipt Date: 20151022
  Transmission Date: 20160304
  Serious: Yes (Other)
  Sender: FDA-Public Use
  Company Number: US-BIOGENIDEC-2015BI139118

PATIENT
  Age: 76 Year
  Sex: Female

DRUGS (1)
  1. TECFIDERA [Suspect]
     Active Substance: DIMETHYL FUMARATE
     Indication: MULTIPLE SCLEROSIS
     Route: 048
     Dates: start: 20150430, end: 20150819

REACTIONS (2)
  - Squamous cell carcinoma [Unknown]
  - Postoperative wound infection [Recovered/Resolved with Sequelae]

NARRATIVE: CASE EVENT DATE: 201509
